FAERS Safety Report 7061405-6 (Version None)
Quarter: 2010Q4

REPORT INFORMATION
  Report Type: 
  Country: None (occurrence: None)
  Receive Date: 20101026
  Receipt Date: 20101022
  Transmission Date: 20110411
  Serious: Yes (Disabling)
  Sender: FDA-Public Use
  Company Number: JP-SANOFI-AVENTIS-2009SA008593

PATIENT
  Age: 70 Year
  Sex: Female

DRUGS (1)
  1. CLEXANE [Suspect]
     Route: 058
     Dates: start: 20091210, end: 20091211

REACTIONS (1)
  - EXTRADURAL HAEMATOMA [None]
